FAERS Safety Report 6808958-8 (Version None)
Quarter: 2010Q2

REPORT INFORMATION
  Report Type: 
  Country: None (occurrence: None)
  Receive Date: 20100630
  Receipt Date: 20091214
  Transmission Date: 20101027
  Serious: No
  Sender: FDA-Public Use
  Company Number: US-PFIZER INC-2009279491

PATIENT
  Sex: Female
  Weight: 79.378 kg

DRUGS (2)
  1. ARTHROTEC [Suspect]
     Indication: BACK PAIN
     Dosage: 75 MG, 1X/DAY
     Dates: start: 20090930, end: 20091001
  2. BENADRYL [Concomitant]

REACTIONS (3)
  - HEART RATE INCREASED [None]
  - PRURITUS [None]
  - RASH [None]
